FAERS Safety Report 25467872 (Version 1)
Quarter: 2025Q2

REPORT INFORMATION
  Report Type: Report from Study
  Country: US (occurrence: US)
  Receive Date: 20250623
  Receipt Date: 20250623
  Transmission Date: 20250717
  Serious: Yes (Hospitalization, Other)
  Sender: MALLINCKRODT
  Company Number: US-MALLINCKRODT-MNK202501392

PATIENT
  Age: 64 Year
  Sex: Male

DRUGS (4)
  1. CORTICOTROPIN [Suspect]
     Active Substance: CORTICOTROPIN
     Indication: Nephrotic syndrome
     Dosage: 40 UNITS
     Route: 058
     Dates: start: 20230326, end: 2025
  2. CORTICOTROPIN [Suspect]
     Active Substance: CORTICOTROPIN
     Indication: Glomerulonephritis
  3. CORTICOTROPIN [Suspect]
     Active Substance: CORTICOTROPIN
     Indication: Nephrotic syndrome
  4. CORTICOTROPIN [Suspect]
     Active Substance: CORTICOTROPIN
     Indication: Glomerulonephritis

REACTIONS (6)
  - Eyelid injury [Unknown]
  - Fall [Unknown]
  - Arthropathy [Not Recovered/Not Resolved]
  - Nephrotic syndrome [Unknown]
  - Pneumonia [Unknown]
  - Diverticulitis [Unknown]

NARRATIVE: CASE EVENT DATE: 20241201
